FAERS Safety Report 19230714 (Version 1)
Quarter: 2021Q2

REPORT INFORMATION
  Report Type: Spontaneous
  Country: US (occurrence: US)
  Receive Date: 20210507
  Receipt Date: 20210507
  Transmission Date: 20210717
  Serious: Yes (Other)
  Sender: FDA-Public Use
  Company Number: None

PATIENT
  Age: 64 Year
  Sex: Female
  Weight: 54.43 kg

DRUGS (7)
  1. ALPRAZOLAM 0.5MG [Concomitant]
     Active Substance: ALPRAZOLAM
  2. CLOBETASOL 0.05% CREAM [Concomitant]
     Active Substance: CLOBETASOL
  3. METOPROLOL ER SUCCINATE [Suspect]
     Active Substance: METOPROLOL SUCCINATE
     Indication: HEART RATE INCREASED
     Dosage: ?          QUANTITY:12.5 MG MILLIGRAM(S);?
     Route: 048
     Dates: start: 201712, end: 202012
  4. VITAMINS: A, C, D3 [Concomitant]
  5. ZYRTEC [Concomitant]
     Active Substance: CETIRIZINE HYDROCHLORIDE
  6. OXYCODONE AND ACETAMINOPHEN [Concomitant]
     Active Substance: ACETAMINOPHEN\OXYCODONE HYDROCHLORIDE
  7. TRETINOIN ?.025% CREAM [Concomitant]

REACTIONS (2)
  - Urticaria [None]
  - Pruritus [None]
